FAERS Safety Report 6721608-4 (Version None)
Quarter: 2010Q2

REPORT INFORMATION
  Report Type: 
  Country: None (occurrence: None)
  Receive Date: 20100512
  Receipt Date: 20100429
  Transmission Date: 20101027
  Serious: Yes (Other)
  Sender: FDA-Public Use
  Company Number: PHHY2010BR27593

PATIENT
  Age: 84 Year
  Sex: Male

DRUGS (3)
  1. DIOVAN [Suspect]
     Indication: HYPERTENSION
     Dosage: UNK
     Route: 048
     Dates: start: 20040101
  2. CILOSTAZOL [Concomitant]
     Dosage: 1 TABLET TWICE A DAY (MORNING AND NIGHT)
  3. RIVOTRIL [Concomitant]
     Dosage: 1 TABLET AT NIGHT

REACTIONS (2)
  - BLINDNESS [None]
  - GLAUCOMA [None]
